FAERS Safety Report 17501807 (Version 6)
Quarter: 2022Q4

REPORT INFORMATION
  Report Type: Spontaneous
  Country: US (occurrence: US)
  Receive Date: 20200305
  Receipt Date: 20221108
  Transmission Date: 20230113
  Serious: No
  Sender: FDA-Public Use
  Company Number: US-PFIZER INC-2020098676

PATIENT
  Age: 85 Year
  Sex: Female
  Weight: 50.794 kg

DRUGS (2)
  1. PREMARIN [Suspect]
     Active Substance: ESTROGENS, CONJUGATED
     Indication: Cystitis
     Dosage: UNK
  2. PREMARIN [Suspect]
     Active Substance: ESTROGENS, CONJUGATED
     Dosage: UNK, 1X/DAY
     Dates: start: 201912

REACTIONS (5)
  - Illness [Unknown]
  - Aphonia [Unknown]
  - Off label use [Unknown]
  - Product dose omission issue [Unknown]
  - Product dispensing error [Unknown]
